FAERS Safety Report 9221788 (Version 2)
Quarter: 2013Q2

REPORT INFORMATION
  Report Type: Spontaneous
  Country: IT (occurrence: None)
  Receive Date: 20130408
  Receipt Date: 20130411
  Transmission Date: 20140414
  Serious: Yes (Hospitalization)
  Sender: FDA-Public Use
  Company Number: AUR-APL-2013-02878

PATIENT
  Age: 73 Year
  Sex: Female

DRUGS (4)
  1. AMOXICILLIN+CLAVULANIC ACID [Suspect]
     Indication: DENTAL OPERATION
     Route: 048
     Dates: start: 20130314, end: 20130315
  2. LEVOFLOXACIN (LEVOFLOXACIN) [Suspect]
     Indication: DENTAL OPERATION
     Dosage: 1 DOSAGE FORMS, 1 D, ORAL
     Route: 048
     Dates: start: 20130315, end: 20130317
  3. CARDICOR (BISOPROLOL FUMARATE) [Concomitant]
  4. METFORMIN HYDROCHLORIDE (METFORMIN HYDROCHLORIDE) [Concomitant]

REACTIONS (2)
  - Erythema [None]
  - Vomiting [None]
